FAERS Safety Report 7866339-2 (Version None)
Quarter: 2011Q4

REPORT INFORMATION
  Report Type: 
  Country: None (occurrence: None)
  Receive Date: 20111028
  Receipt Date: 20110601
  Transmission Date: 20120403
  Serious: No
  Sender: FDA-Public Use
  Company Number: US-GLAXOSMITHKLINE-A0929897A

PATIENT
  Age: 75 Year
  Sex: Female

DRUGS (7)
  1. FISH OIL [Concomitant]
  2. LIPITOR [Concomitant]
  3. SYNTHROID [Concomitant]
  4. VITAMIN-MINERAL COMPOUND TAB [Concomitant]
  5. CALCIUM CARBONATE [Concomitant]
  6. ADVAIR DISKUS 100/50 [Suspect]
     Indication: DYSPNOEA
     Dosage: 1PUFF TWICE PER DAY
     Route: 055
     Dates: start: 19920101
  7. MULTI-VITAMIN [Concomitant]

REACTIONS (3)
  - PRODUCT QUALITY ISSUE [None]
  - DYSPNOEA [None]
  - DRUG INEFFECTIVE [None]
